FAERS Safety Report 4342331-X (Version None)
Quarter: 2004Q2

REPORT INFORMATION
  Report Type: 
  Country: None (occurrence: None)
  Receive Date: 20040420
  Receipt Date: 20040420
  Transmission Date: 20050107
  Serious: Yes (Other)
  Sender: FDA-Public Use
  Company Number: None

PATIENT
  Sex: Female
  Weight: 61.2356 kg

DRUGS (2)
  1. NEURONTIN [Suspect]
     Dosage: 100 MG TID
     Dates: start: 20021017, end: 20040219
  2. SERZONE [Concomitant]

REACTIONS (1)
  - BONE DENSITY DECREASED [None]
